FAERS Safety Report 9119161 (Version 3)
Quarter: 2013Q1

REPORT INFORMATION
  Report Type: Spontaneous
  Country: DE (occurrence: DE)
  Receive Date: 20130226
  Receipt Date: 20130328
  Transmission Date: 20140127
  Serious: Yes (Hospitalization)
  Sender: FDA-Public Use
  Company Number: PHHY2013DE017754

PATIENT
  Age: 13 Year
  Sex: Male

DRUGS (1)
  1. RITALIN LA [Suspect]
     Dosage: 40 MG, UNK
     Route: 048

REACTIONS (3)
  - Mycoplasma infection [Recovered/Resolved]
  - Proteinuria [Recovered/Resolved]
  - Arthralgia [Recovered/Resolved]
